FAERS Safety Report 8035484-3 (Version None)
Quarter: 2012Q1

REPORT INFORMATION
  Report Type: 
  Country: None (occurrence: None)
  Receive Date: 20120110
  Receipt Date: 20120110
  Transmission Date: 20120608
  Serious: Yes (Hospitalization)
  Sender: FDA-Public Use
  Company Number: None

PATIENT
  Age: 67 Year
  Sex: Male
  Weight: 87.2 kg

DRUGS (1)
  1. LEUPROLIDE ACETATE [Suspect]
     Indication: PROSTATE CANCER
     Dosage: 7.5 MG ONCE IM
     Route: 030
     Dates: start: 20110803, end: 20110811

REACTIONS (8)
  - PNEUMONIA [None]
  - PYREXIA [None]
  - DYSPNOEA [None]
  - FATIGUE [None]
  - ASTHENIA [None]
  - PRURITUS [None]
  - LUNG INFILTRATION [None]
  - RASH [None]
